FAERS Safety Report 5780700-1 (Version None)
Quarter: 2008Q2

REPORT INFORMATION
  Report Type: 
  Country: None (occurrence: None)
  Receive Date: 20080620
  Receipt Date: 20080610
  Transmission Date: 20081010
  Serious: Yes (Other)
  Sender: FDA-Public Use
  Company Number: GB-PFIZER INC-2008049588

PATIENT
  Age: 58 Year
  Sex: Female

DRUGS (7)
  1. CHANTIX [Suspect]
     Indication: SMOKING CESSATION THERAPY
     Route: 048
     Dates: start: 20080503, end: 20080511
  2. AMOXICILLIN [Concomitant]
     Route: 048
     Dates: start: 20080503, end: 20080510
  3. ATROVENT [Concomitant]
     Route: 055
  4. CARBOCISTEINE [Concomitant]
     Route: 048
     Dates: start: 20080503
  5. ELLESTE-DUET CONTI [Concomitant]
     Route: 048
  6. NIFEDIPINE [Concomitant]
     Route: 048
  7. SERETIDE [Concomitant]
     Route: 055

REACTIONS (5)
  - CONFUSIONAL STATE [None]
  - DECREASED INTEREST [None]
  - DISTURBANCE IN ATTENTION [None]
  - DIZZINESS [None]
  - SOMNOLENCE [None]
